FAERS Safety Report 15480683 (Version 4)
Quarter: 2018Q4

REPORT INFORMATION
  Report Type: Spontaneous
  Country: IE (occurrence: IE)
  Receive Date: 20181010
  Receipt Date: 20181130
  Transmission Date: 20190205
  Serious: Yes (Other)
  Sender: FDA-Public Use
  Company Number: PHHY2018IE121224

PATIENT
  Age: 15 Year
  Sex: Male

DRUGS (3)
  1. MYCOPHENOLATE MOFETIL. [Suspect]
     Active Substance: MYCOPHENOLATE MOFETIL
     Indication: GLOMERULONEPHROPATHY
     Dosage: UNK
     Route: 065
  2. CICLOSPORIN [Suspect]
     Active Substance: CYCLOSPORINE
     Indication: GLOMERULONEPHROPATHY
     Dosage: UNK
     Route: 065
  3. RITUXIMAB. [Suspect]
     Active Substance: RITUXIMAB
     Indication: GLOMERULONEPHROPATHY
     Dosage: UNK
     Route: 065

REACTIONS (7)
  - Kidney fibrosis [Unknown]
  - Hypertension [Unknown]
  - Disease progression [Unknown]
  - Disease recurrence [Unknown]
  - Atrophy [Unknown]
  - Drug ineffective [Unknown]
  - Proteinuria [Unknown]
